FAERS Safety Report 24080395 (Version 2)
Quarter: 2024Q3

REPORT INFORMATION
  Report Type: Spontaneous
  Country: US (occurrence: US)
  Receive Date: 20240711
  Receipt Date: 20240828
  Transmission Date: 20241017
  Serious: No
  Sender: PFIZER
  Company Number: US-PFIZER INC-PV202400090716

PATIENT
  Age: 48 Year
  Sex: Female

DRUGS (1)
  1. SOLU-MEDROL [Suspect]
     Active Substance: METHYLPREDNISOLONE SODIUM SUCCINATE
     Dosage: UNK
     Route: 042

REACTIONS (10)
  - COVID-19 [Unknown]
  - Upper respiratory tract infection [Unknown]
  - Bronchitis [Unknown]
  - Infection [Unknown]
  - Neck pain [Unknown]
  - Anger [Unknown]
  - Pyrexia [Unknown]
  - Throat tightness [Unknown]
  - Cerebral disorder [Unknown]
  - Drug intolerance [Unknown]
